FAERS Safety Report 7854078-3 (Version None)
Quarter: 2011Q4

REPORT INFORMATION
  Report Type: 
  Country: None (occurrence: None)
  Receive Date: 20111026
  Receipt Date: 20111014
  Transmission Date: 20120403
  Serious: Yes (Other)
  Sender: FDA-Public Use
  Company Number: FR-PFIZER INC-2011245765

PATIENT
  Age: 74 Year
  Sex: Female

DRUGS (2)
  1. CEFPODOXIME PROXETIL [Suspect]
     Indication: RESPIRATORY TRACT INFECTION
     Dosage: 100 MG, UNK
     Route: 048
     Dates: start: 20070201, end: 20070201
  2. CEFPODOXIME PROXETIL [Suspect]
     Indication: SINUSITIS

REACTIONS (4)
  - SKIN REACTION [None]
  - PRURITUS [None]
  - ANGIOEDEMA [None]
  - DERMATOSIS [None]
